FAERS Safety Report 6046224-1 (Version None)
Quarter: 2009Q1

REPORT INFORMATION
  Report Type: 
  Country: None (occurrence: None)
  Receive Date: 20090121
  Receipt Date: 20090121
  Transmission Date: 20090719
  Serious: Yes (Other)
  Sender: FDA-Public Use
  Company Number: None

PATIENT
  Age: 50 Year
  Sex: Female
  Weight: 52.6173 kg

DRUGS (1)
  1. LEVAQUIN [Suspect]
     Indication: EAR PAIN
     Dosage: DAILY PO
     Route: 048
     Dates: start: 20081216, end: 20081222

REACTIONS (5)
  - ABNORMAL FAECES [None]
  - ARTHRALGIA [None]
  - CHROMATURIA [None]
  - IMPAIRED WORK ABILITY [None]
  - NO THERAPEUTIC RESPONSE [None]
